FAERS Safety Report 7243418-4 (Version None)
Quarter: 2011Q1

REPORT INFORMATION
  Report Type: 
  Country: None (occurrence: None)
  Receive Date: 20110125
  Receipt Date: 20110121
  Transmission Date: 20110831
  Serious: Yes (Death, Hospitalization, Other)
  Sender: FDA-Public Use
  Company Number: US-ASTRAZENECA-2008UW15540

PATIENT
  Age: 17869 Day
  Sex: Female

DRUGS (13)
  1. SEROQUEL [Suspect]
     Dosage: 300 MG TWICE DAILY AND 100 MG AT BED TIME
     Route: 048
     Dates: start: 20031216
  2. FLUPHENAZINE [Concomitant]
     Dates: start: 20050403, end: 20050802
  3. KLONOPIN [Concomitant]
     Dates: start: 20040501
  4. LITHIUM CARBONATE [Concomitant]
     Dates: start: 20040501
  5. LITHIUM CARBONATE [Concomitant]
     Dates: start: 20060420, end: 20060517
  6. AMITRIPTYLINE [Concomitant]
     Dates: start: 20060701
  7. LITHIUM CARBONATE [Concomitant]
     Dates: start: 20060701
  8. HYDROCODONE [Concomitant]
  9. SEROQUEL [Suspect]
     Indication: BIPOLAR DISORDER
     Dosage: 100MG PER DAY, 30MG BID, UP TO 700MG PER DAY
     Route: 048
     Dates: start: 20031111, end: 20060816
  10. XANAX [Concomitant]
     Dates: start: 20040501
  11. LEXAPRO [Concomitant]
     Dates: start: 20060701
  12. CARBAMAZEPINE [Concomitant]
  13. COGENTIN [Concomitant]
     Dates: start: 20040501

REACTIONS (6)
  - PULMONARY OEDEMA [None]
  - ARTHRALGIA [None]
  - DIABETIC CARDIOMYOPATHY [None]
  - HALLUCINATION [None]
  - MYOCARDIAL FIBROSIS [None]
  - PULMONARY CONGESTION [None]
